FAERS Safety Report 5755931-7 (Version None)
Quarter: 2008Q2

REPORT INFORMATION
  Report Type: 
  Country: None (occurrence: None)
  Receive Date: 20080528
  Receipt Date: 20080512
  Transmission Date: 20081010
  Serious: Yes (Other)
  Sender: FDA-Public Use
  Company Number: IDA-00057

PATIENT
  Sex: Male

DRUGS (2)
  1. PROPRANOLOL [Suspect]
     Indication: PORTAL VEIN PRESSURE INCREASED
     Dosage: 20 MG BID
  2. IRBESARTAN [Suspect]
     Indication: PORTAL VEIN PRESSURE INCREASED
     Dosage: EVERY MORNING

REACTIONS (1)
  - OESOPHAGEAL VARICES HAEMORRHAGE [None]
